FAERS Safety Report 6976242-8 (Version None)
Quarter: 2010Q3

REPORT INFORMATION
  Report Type: 
  Country: None (occurrence: None)
  Receive Date: 20100910
  Receipt Date: 20100902
  Transmission Date: 20110219
  Serious: Yes (Other)
  Sender: FDA-Public Use
  Company Number: US-PFIZER INC-2010111574

PATIENT
  Sex: Female

DRUGS (1)
  1. VIAGRA [Suspect]
     Dosage: UNK

REACTIONS (6)
  - BALANCE DISORDER [None]
  - CHROMATURIA [None]
  - CONFUSIONAL STATE [None]
  - HYPOTENSION [None]
  - INTENTIONAL DRUG MISUSE [None]
  - RENAL DISORDER [None]
